FAERS Safety Report 8476113-4 (Version None)
Quarter: 2012Q2

REPORT INFORMATION
  Report Type: 
  Country: None (occurrence: None)
  Receive Date: 20120628
  Receipt Date: 20120619
  Transmission Date: 20120825
  Serious: Yes (Other)
  Sender: FDA-Public Use
  Company Number: US-ASTRAZENECA-2012SE41437

PATIENT
  Age: 54 Year
  Sex: Male

DRUGS (1)
  1. NEXIUM [Suspect]
     Route: 048

REACTIONS (6)
  - ACCIDENT [None]
  - LIGAMENT RUPTURE [None]
  - JOINT INJURY [None]
  - BONE FRAGMENTATION [None]
  - FALL [None]
  - CARTILAGE INJURY [None]
